FAERS Safety Report 8515592-0 (Version None)
Quarter: 2012Q3

REPORT INFORMATION
  Report Type: 
  Country: None (occurrence: None)
  Receive Date: 20120717
  Receipt Date: 20120710
  Transmission Date: 20120928
  Serious: Yes (Other)
  Sender: FDA-Public Use
  Company Number: PHEH2012US013498

PATIENT
  Age: 40 Year

DRUGS (1)
  1. TEKTURNA [Suspect]
     Dosage: 300 MG, QD

REACTIONS (1)
  - CONVULSION [None]
